FAERS Safety Report 21274698 (Version 1)
Quarter: 2022Q3

REPORT INFORMATION
  Report Type: Spontaneous
  Country: GB (occurrence: GB)
  Receive Date: 20220831
  Receipt Date: 20220831
  Transmission Date: 20221026
  Serious: Yes (Other)
  Sender: FDA-Public Use
  Company Number: None

PATIENT
  Age: 62 Year
  Sex: Female
  Weight: 60 kg

DRUGS (5)
  1. CLOPIDOGREL [Suspect]
     Active Substance: CLOPIDOGREL BISULFATE
     Indication: Transient ischaemic attack
     Dosage: 75MG DAILY
     Route: 065
     Dates: start: 20220223
  2. ADALIMUMAB [Concomitant]
     Active Substance: ADALIMUMAB
     Indication: Axial spondyloarthritis
     Dosage: UNKNOWN
     Route: 065
     Dates: start: 20210322
  3. LANSOPRAZOLE [Concomitant]
     Active Substance: LANSOPRAZOLE
     Indication: Axial spondyloarthritis
     Dosage: UNKNOWN
     Route: 065
     Dates: start: 20210304
  4. NAPROXEN [Concomitant]
     Active Substance: NAPROXEN
     Indication: Axial spondyloarthritis
     Dosage: UNKNOWN
     Route: 065
     Dates: start: 20210304
  5. SIMVASTATIN [Concomitant]
     Active Substance: SIMVASTATIN
     Indication: Transient ischaemic attack
     Dosage: UNKNOWN
     Route: 065
     Dates: start: 20210223

REACTIONS (2)
  - Medication error [Unknown]
  - Gingival bleeding [Recovered/Resolved]

NARRATIVE: CASE EVENT DATE: 20220818
